FAERS Safety Report 23278937 (Version 1)
Quarter: 2023Q4

REPORT INFORMATION
  Report Type: Report from Study
  Country: CO (occurrence: CO)
  Receive Date: 20231208
  Receipt Date: 20231208
  Transmission Date: 20240110
  Serious: Yes (Hospitalization)
  Sender: FDA-Public Use
  Company Number: CO-Eisai-EC-2023-154713

PATIENT
  Age: 77 Year
  Sex: Male
  Weight: 82 kg

DRUGS (16)
  1. LENVATINIB [Suspect]
     Active Substance: LENVATINIB
     Indication: Clear cell renal cell carcinoma
     Dosage: STARTING DOSE AT 20MG (FLUCTUATED DOSAGE)
     Route: 048
     Dates: start: 20220623, end: 20230803
  2. LENVATINIB [Suspect]
     Active Substance: LENVATINIB
     Route: 048
     Dates: start: 20230906
  3. PEMBROLIZUMAB [Suspect]
     Active Substance: PEMBROLIZUMAB
     Indication: Clear cell renal cell carcinoma
     Route: 041
     Dates: start: 20220623, end: 20230705
  4. PEMBROLIZUMAB [Suspect]
     Active Substance: PEMBROLIZUMAB
     Route: 041
     Dates: start: 20230831
  5. ATORVASTATIN [Concomitant]
     Active Substance: ATORVASTATIN
     Dates: start: 202007
  6. FEBUXOSTAT [Concomitant]
     Active Substance: FEBUXOSTAT
     Dates: start: 20221102, end: 20230809
  7. LEVOTHYROXINE SODIUM [Concomitant]
     Active Substance: LEVOTHYROXINE SODIUM
     Dates: start: 20221213
  8. ACETAMINOPHEN [Concomitant]
     Active Substance: ACETAMINOPHEN
     Dates: start: 20221221
  9. DULOXETINE HYDROCHLORIDE [Concomitant]
     Active Substance: DULOXETINE HYDROCHLORIDE
     Dates: start: 20221221, end: 20230820
  10. TAPENTADOL [Concomitant]
     Active Substance: TAPENTADOL
     Dates: start: 20230120, end: 20230820
  11. PREGABALIN [Concomitant]
     Active Substance: PREGABALIN
     Dates: start: 20230310, end: 20230820
  12. INDAPAMIDE;VALSARTAN [Concomitant]
     Dates: start: 20230520, end: 20230809
  13. PREDNISOLONE [Concomitant]
     Active Substance: PREDNISOLONE
     Dates: start: 20230602, end: 20230824
  14. CLONIDINE [Concomitant]
     Active Substance: CLONIDINE
     Dates: start: 20230526, end: 20230804
  15. MINOXIDIL [Concomitant]
     Active Substance: MINOXIDIL
     Dates: start: 20230804, end: 20230805
  16. METOPROLOL [Concomitant]
     Active Substance: METOPROLOL
     Dates: start: 20230804, end: 20230805

REACTIONS (1)
  - Urinary tract infection [Recovered/Resolved]

NARRATIVE: CASE EVENT DATE: 20230805
